FAERS Safety Report 14716274 (Version 3)
Quarter: 2018Q2

REPORT INFORMATION
  Report Type: Spontaneous
  Country: IN (occurrence: IN)
  Receive Date: 20180404
  Receipt Date: 20180628
  Transmission Date: 20180711
  Serious: Yes (Other)
  Sender: FDA-Public Use
  Company Number: IN-PFIZER INC-2018136529

PATIENT
  Sex: Female

DRUGS (3)
  1. AROMASIN [Suspect]
     Active Substance: EXEMESTANE
     Indication: BREAST CANCER
     Dosage: 25 (UNIT WAS UNSPECIFIED), 1X/DAY FOR 6 MONTHS
     Route: 048
     Dates: start: 20151109
  2. TAMOXIFEN [Concomitant]
     Active Substance: TAMOXIFEN
     Dosage: UNK
  3. ZOLADEX [Concomitant]
     Active Substance: GOSERELIN ACETATE
     Indication: MENSTRUAL CYCLE MANAGEMENT
     Dosage: UNK

REACTIONS (4)
  - Pain in extremity [Unknown]
  - Product use in unapproved indication [Unknown]
  - Product use issue [Unknown]
  - Haemorrhage [Unknown]
